FAERS Safety Report 11173803 (Version 1)
Quarter: 2015Q2

REPORT INFORMATION
  Report Type: Spontaneous
  Country: US (occurrence: None)
  Receive Date: 20150605
  Receipt Date: 20150605
  Transmission Date: 20150821
  Serious: Yes (Hospitalization)
  Sender: FDA-Public Use
  Company Number: 2015JUB00156

PATIENT
  Age: 55 Year
  Sex: Female

DRUGS (3)
  1. LITHIUM. [Concomitant]
     Active Substance: LITHIUM
  2. OLANZAPINE. [Suspect]
     Active Substance: OLANZAPINE
     Indication: SCHIZOAFFECTIVE DISORDER
  3. BUPROPRION (BUPROPION) [Concomitant]

REACTIONS (4)
  - Drug-induced liver injury [None]
  - Hallucination [None]
  - Transaminases increased [None]
  - Mental status changes [None]
